FAERS Safety Report 20064542 (Version 1)
Quarter: 2021Q4

REPORT INFORMATION
  Report Type: Spontaneous
  Country: US (occurrence: None)
  Receive Date: 20211112
  Receipt Date: 20211112
  Transmission Date: 20220304
  Serious: Yes (Other)
  Sender: FDA-Public Use
  Company Number: None

PATIENT
  Age: 51 Year
  Sex: Female

DRUGS (14)
  1. ZORTRESS [Suspect]
     Active Substance: EVEROLIMUS
     Indication: Renal transplant
     Dosage: FREQUENCY : TWICE A DAY;?
     Route: 048
  2. AMOXICILLIN [Concomitant]
     Active Substance: AMOXICILLIN
  3. ASPIRIN [Concomitant]
     Active Substance: ASPIRIN
  4. FAMOTIDINE [Concomitant]
     Active Substance: FAMOTIDINE
  5. NIFEDIPINE [Concomitant]
     Active Substance: NIFEDIPINE
  6. PREDNISONE [Concomitant]
     Active Substance: PREDNISONE
  7. SODIUM BICARBONATE [Concomitant]
     Active Substance: SODIUM BICARBONATE
  8. TELMISARTAN [Concomitant]
     Active Substance: TELMISARTAN
  9. ALBUTEROL SULFATE [Concomitant]
     Active Substance: ALBUTEROL SULFATE
  10. BELATACEPT [Concomitant]
     Active Substance: BELATACEPT
  11. MONTELUKAST [Concomitant]
     Active Substance: MONTELUKAST SODIUM
  12. VITAMINS [Concomitant]
     Active Substance: VITAMINS
  13. FEXOFENADINE [Concomitant]
     Active Substance: FEXOFENADINE HYDROCHLORIDE
  14. ULTOMIRIS [Concomitant]
     Active Substance: RAVULIZUMAB-CWVZ

REACTIONS (3)
  - Mouth ulceration [None]
  - Therapy change [None]
  - Feeding disorder [None]
